FAERS Safety Report 13909428 (Version 2)
Quarter: 2018Q2

REPORT INFORMATION
  Report Type: Spontaneous
  Country: CA (occurrence: CA)
  Receive Date: 20170828
  Receipt Date: 20180616
  Transmission Date: 20180711
  Serious: Yes (Death, Hospitalization, Other)
  Sender: FDA-Public Use
  Company Number: CA-ACCORD-057680

PATIENT
  Age: 18 Year
  Sex: Female
  Weight: 63 kg

DRUGS (7)
  1. ISONIAZID. [Concomitant]
     Active Substance: ISONIAZID
  2. ALCOHOL. [Suspect]
     Active Substance: ALCOHOL
     Dosage: UNSPECIFIED DOSE OF ETHANOL
  3. PARACETAMOL [Suspect]
     Active Substance: ACETAMINOPHEN
     Route: 048
  4. CITALOPRAM [Concomitant]
     Active Substance: CITALOPRAM HYDROBROMIDE
  5. ATOMOXETINE/ATOMOXETINE HYDROCHLORIDE [Concomitant]
  6. QUETIAPINE. [Suspect]
     Active Substance: QUETIAPINE
     Dosage: APPROX 20 PILLS
     Route: 048
  7. ACETYLSALICYLIC ACID [Suspect]
     Active Substance: ASPIRIN
     Route: 048

REACTIONS (8)
  - Atrial fibrillation [Recovering/Resolving]
  - Encephalopathy [Unknown]
  - Renal tubular necrosis [Unknown]
  - Myalgia [Unknown]
  - Overdose [Fatal]
  - Hepatic failure [Not Recovered/Not Resolved]
  - Cardiac arrest [Fatal]
  - Myocarditis [Fatal]
